FAERS Safety Report 5205667-6 (Version None)
Quarter: 2007Q1

REPORT INFORMATION
  Report Type: 
  Country: None (occurrence: None)
  Receive Date: 20070105
  Receipt Date: 20070105
  Transmission Date: 20070707
  Serious: Yes (Hospitalization)
  Sender: FDA-Public Use
  Company Number: None

PATIENT
  Sex: Male

DRUGS (5)
  1. ALPRAZOLAM [Suspect]
     Indication: ANXIETY
     Dosage: 8-10 MG PO QD
     Route: 048
  2. QUETIAPINE FUMARATE [Concomitant]
  3. ALPRAZOLAM [Concomitant]
  4. METHADONE HCL [Concomitant]
  5. FLUOXETINE [Concomitant]

REACTIONS (3)
  - DRUG ABUSER [None]
  - DRUG WITHDRAWAL CONVULSIONS [None]
  - TONIC CLONIC MOVEMENTS [None]
